FAERS Safety Report 9435753 (Version 1)
Quarter: 2013Q3

REPORT INFORMATION
  Report Type: Spontaneous
  Country: US (occurrence: None)
  Receive Date: 20130801
  Receipt Date: 20130801
  Transmission Date: 20140515
  Serious: Yes (Hospitalization)
  Sender: FDA-Public Use
  Company Number: None

PATIENT
  Age: 59 Year
  Sex: Female
  Weight: 54.5 kg

DRUGS (6)
  1. DOCETAXEL [Suspect]
     Indication: TRANSITIONAL CELL CARCINOMA URETHRA
     Route: 042
     Dates: start: 20130722
  2. LAPATINIB [Suspect]
     Route: 048
     Dates: start: 20130722, end: 20130727
  3. GABAPENTIN [Concomitant]
  4. METHADONE [Concomitant]
  5. ADVIL [Concomitant]
  6. ZOFRAN [Concomitant]

REACTIONS (4)
  - Neutropenia [None]
  - Nausea [None]
  - Vomiting [None]
  - Diarrhoea [None]
